FAERS Safety Report 8759976 (Version 2)
Quarter: 2012Q4

REPORT INFORMATION
  Report Type: Report from Study
  Country: CA (occurrence: CA)
  Receive Date: 20120829
  Receipt Date: 20121009
  Transmission Date: 20130627
  Serious: Yes (Hospitalization)
  Sender: FDA-Public Use
  Company Number: CA-JNJFOC-20120812872

PATIENT
  Age: 37 Year
  Sex: Female
  Weight: 81.5 kg

DRUGS (6)
  1. REMICADE [Suspect]
     Indication: COLITIS ULCERATIVE
     Route: 042
     Dates: start: 20120621
  2. HYDROCHLOROTHIAZIDE [Concomitant]
     Route: 065
  3. SYNTHROID [Concomitant]
     Route: 065
  4. CALCIUM AND VITAMIN D [Concomitant]
     Route: 065
  5. IRON [Concomitant]
     Route: 065
  6. PREDNISONE [Concomitant]
     Route: 065

REACTIONS (1)
  - Colitis ulcerative [Recovered/Resolved]
